FAERS Safety Report 20582978 (Version 4)
Quarter: 2023Q4

REPORT INFORMATION
  Report Type: Spontaneous
  Country: US (occurrence: US)
  Receive Date: 20220311
  Receipt Date: 20231017
  Transmission Date: 20240109
  Serious: Yes (Death, Disabling, Other)
  Sender: FDA-Public Use
  Company Number: US-ORGANON-O2203USA000867

PATIENT
  Sex: Male

DRUGS (2)
  1. SINGULAIR [Suspect]
     Active Substance: MONTELUKAST SODIUM
     Indication: Asthma
     Dosage: 4 MILLIGRAM
     Route: 048
     Dates: start: 2004, end: 2013
  2. SINGULAIR [Suspect]
     Active Substance: MONTELUKAST SODIUM
     Indication: Asthma
     Dosage: 5 MILLIGRAM
     Route: 048
     Dates: start: 2004, end: 2013

REACTIONS (6)
  - Completed suicide [Fatal]
  - Neuropsychological symptoms [Unknown]
  - Hallucination [Unknown]
  - Sleep terror [Unknown]
  - Thinking abnormal [Unknown]
  - Somnambulism [Unknown]

NARRATIVE: CASE EVENT DATE: 20040101
